FAERS Safety Report 7013109-3 (Version None)
Quarter: 2010Q3

REPORT INFORMATION
  Report Type: 
  Country: None (occurrence: None)
  Receive Date: 20100924
  Receipt Date: 20100915
  Transmission Date: 20110219
  Serious: Yes (Hospitalization)
  Sender: FDA-Public Use
  Company Number: FR-JNJFOC-20100905653

PATIENT
  Sex: Male
  Weight: 63 kg

DRUGS (8)
  1. PREZISTA [Suspect]
     Indication: HIV INFECTION
     Route: 048
  2. PREZISTA [Suspect]
     Route: 048
  3. NORVIR [Suspect]
     Indication: HIV INFECTION
     Route: 048
  4. PROGRAF [Interacting]
     Indication: PRODUCT USED FOR UNKNOWN INDICATION
     Route: 048
  5. PROGRAF [Interacting]
     Route: 048
  6. PROGRAF [Interacting]
     Route: 048
  7. INTELENCE [Concomitant]
     Indication: HIV INFECTION
     Route: 048
  8. VIREAD [Concomitant]
     Indication: HIV INFECTION
     Route: 048

REACTIONS (3)
  - DRUG INTERACTION [None]
  - IMMUNOSUPPRESSANT DRUG LEVEL INCREASED [None]
  - RENAL FUNCTION TEST ABNORMAL [None]
